FAERS Safety Report 18873944 (Version 1)
Quarter: 2021Q1

REPORT INFORMATION
  Report Type: Spontaneous
  Country: CZ (occurrence: CZ)
  Receive Date: 20210210
  Receipt Date: 20210210
  Transmission Date: 20210420
  Serious: Yes (Hospitalization)
  Sender: FDA-Public Use
  Company Number: CZ-REGENERON PHARMACEUTICALS, INC.-2019-36083

PATIENT

DRUGS (14)
  1. BETALOC [METOPROLOL TARTRATE] [Concomitant]
     Active Substance: METOPROLOL TARTRATE
     Dosage: UNK UNK, UNK
     Route: 065
  2. BETALOC [METOPROLOL TARTRATE] [Concomitant]
     Active Substance: METOPROLOL TARTRATE
     Indication: SINUS TACHYCARDIA
     Dosage: UNK UNK, UNK
     Route: 065
  3. GODASAL [Concomitant]
     Active Substance: ASPIRIN\GLYCINE
     Indication: PROPHYLAXIS
     Dosage: UNK UNK, UNK
     Route: 065
  4. LEXAURIN [Concomitant]
     Active Substance: BROMAZEPAM
     Indication: INSOMNIA
     Dosage: UNK UNK, UNK
     Route: 065
  5. PRALUENT [Suspect]
     Active Substance: ALIROCUMAB
     Indication: PRODUCT USED FOR UNKNOWN INDICATION
     Dosage: UNK, UNK
     Route: 065
  6. EVINACUMAB. [Suspect]
     Active Substance: EVINACUMAB
     Indication: HYPERCHOLESTEROLAEMIA
     Dosage: 15 MG/KG, Q4W
     Route: 042
     Dates: start: 20180807
  7. PRENEWEL [Concomitant]
     Active Substance: INDAPAMIDE\PERINDOPRIL ERBUMINE
     Indication: HYPERTENSION
     Dosage: UNK UNK, UNK
     Route: 065
  8. NOCLAUD [Concomitant]
     Active Substance: CILOSTAZOL
     Indication: PERIPHERAL ARTERIAL OCCLUSIVE DISEASE
     Dosage: UNK UNK, UNK
     Route: 065
  9. TULIP [FLURBIPROFEN] [Concomitant]
     Indication: DYSLIPIDAEMIA
     Dosage: UNK UNK, UNK
     Route: 065
  10. PRENEWEL [Concomitant]
     Active Substance: INDAPAMIDE\PERINDOPRIL ERBUMINE
     Dosage: UNK UNK, UNK
     Route: 065
  11. NOCLAUD [Concomitant]
     Active Substance: CILOSTAZOL
     Dosage: UNK UNK, UNK
     Route: 065
  12. TULIP [FLURBIPROFEN] [Concomitant]
     Dosage: UNK UNK, UNK
     Route: 065
  13. GODASAL [Concomitant]
     Active Substance: ASPIRIN\GLYCINE
     Dosage: UNK UNK, UNK
     Route: 065
  14. LEXAURIN [Concomitant]
     Active Substance: BROMAZEPAM
     Dosage: UNK UNK, UNK
     Route: 065

REACTIONS (1)
  - Peripheral arterial occlusive disease [Recovered/Resolved]

NARRATIVE: CASE EVENT DATE: 20180903
